FAERS Safety Report 5556844-6 (Version None)
Quarter: 2007Q4

REPORT INFORMATION
  Report Type: 
  Country: None (occurrence: None)
  Receive Date: 20071210
  Receipt Date: 20071210
  Transmission Date: 20080405
  Serious: Yes (Hospitalization)
  Sender: FDA-Public Use
  Company Number: None

PATIENT
  Sex: Male
  Weight: 79.5 kg

DRUGS (3)
  1. CYTARABINE [Suspect]
     Dosage: 1330 MG
     Dates: start: 20071105, end: 20071111
  2. DAUNORUBICIN HCL [Suspect]
     Dosage: 510 MG
     Dates: end: 20071107
  3. ETOPOSIDE [Suspect]
     Dosage: 570 MG
     Dates: end: 20071107

REACTIONS (5)
  - ABDOMINAL DISCOMFORT [None]
  - BLOOD ALBUMIN DECREASED [None]
  - CAECITIS [None]
  - FLATULENCE [None]
  - SMALL INTESTINAL OBSTRUCTION [None]
